FAERS Safety Report 9857218 (Version 2)
Quarter: 2014Q1

REPORT INFORMATION
  Report Type: Spontaneous
  Country: US (occurrence: US)
  Receive Date: 20140130
  Receipt Date: 20140210
  Transmission Date: 20141002
  Serious: Yes (Death, Hospitalization, Other)
  Sender: FDA-Public Use
  Company Number: US-BAXTER-2014BAX004774

PATIENT
  Age: 57 Year
  Sex: Male

DRUGS (3)
  1. FEIBA NF [Suspect]
     Indication: HAEMOPHILIA A WITH ANTI FACTOR VIII
     Route: 042
  2. FEIBA NF [Suspect]
     Indication: CEREBRAL HAEMORRHAGE
     Route: 042
  3. OXYCODONE [Suspect]
     Indication: PAIN
     Route: 048
     Dates: start: 2004

REACTIONS (5)
  - Death [Fatal]
  - Myocardial infarction [Not Recovered/Not Resolved]
  - Convulsion [Not Recovered/Not Resolved]
  - Cerebral haemorrhage [Not Recovered/Not Resolved]
  - Pain [Not Recovered/Not Resolved]
